FAERS Safety Report 5096251-6 (Version None)
Quarter: 2006Q3

REPORT INFORMATION
  Report Type: 
  Country: None (occurrence: None)
  Receive Date: 20060905
  Receipt Date: 20060828
  Transmission Date: 20061208
  Serious: Yes (Hospitalization, Congenital Anomaly)
  Sender: FDA-Public Use
  Company Number: FR-MERCK-0608FRA00047

PATIENT
  Age: 11 Day
  Sex: Female
  Weight: 3 kg

DRUGS (5)
  1. CRIXIVAN [Suspect]
     Indication: HIV INFECTION
  2. RITONAVIR [Suspect]
     Indication: HIV INFECTION
  3. NEVIRAPINE [Suspect]
  4. LAMIVUDINE AND ZIDOVUDINE [Suspect]
  5. ZIDOVUDINE [Suspect]
     Dates: start: 20060615, end: 20060621

REACTIONS (9)
  - ANAEMIA [None]
  - CAESAREAN SECTION [None]
  - CONGENITAL TRACHEOMALACIA [None]
  - CONVULSION [None]
  - DRUG EXPOSURE DURING PREGNANCY [None]
  - NEONATAL RESPIRATORY DISTRESS SYNDROME [None]
  - NEUTROPENIA [None]
  - OVERDOSE [None]
  - TRACHEOMALACIA [None]
